FAERS Safety Report 14090498 (Version 2)
Quarter: 2017Q4

REPORT INFORMATION
  Report Type: Spontaneous
  Country: US (occurrence: US)
  Receive Date: 20171015
  Receipt Date: 20171110
  Transmission Date: 20180321
  Serious: Yes (Hospitalization, Other)
  Sender: FDA-Public Use
  Company Number: US-BRISTOL-MYERS SQUIBB COMPANY-BMS-2017-091720

PATIENT
  Age: 64 Year
  Sex: Male
  Weight: 70.6 kg

DRUGS (1)
  1. SPRYCEL [Suspect]
     Active Substance: DASATINIB
     Indication: CHRONIC MYELOID LEUKAEMIA
     Dosage: 80 MG, UNK
     Route: 048
     Dates: start: 20170322, end: 20171003

REACTIONS (16)
  - Acute leukaemia [Unknown]
  - Leukopenia [Unknown]
  - Chills [Unknown]
  - Petechiae [Unknown]
  - Decreased appetite [Unknown]
  - Leukocytosis [Recovering/Resolving]
  - Febrile neutropenia [Unknown]
  - Pancytopenia [Unknown]
  - Mouth ulceration [Unknown]
  - Thrombocytopenia [Unknown]
  - Dyspnoea exertional [Unknown]
  - Lethargy [Unknown]
  - Pneumonia [Unknown]
  - Fatigue [Unknown]
  - Pulmonary mass [Unknown]
  - Malaise [Unknown]

NARRATIVE: CASE EVENT DATE: 2017
